FAERS Safety Report 8000263-X (Version None)
Quarter: 2011Q4

REPORT INFORMATION
  Report Type: 
  Country: None (occurrence: None)
  Receive Date: 20111222
  Receipt Date: 20111212
  Transmission Date: 20120403
  Serious: Yes (Hospitalization, Other)
  Sender: FDA-Public Use
  Company Number: US-BAYER-2011-091072

PATIENT
  Age: 46 Year
  Sex: Female
  Weight: 90.703 kg

DRUGS (3)
  1. ADVAIR DISKUS 100/50 [Concomitant]
  2. YASMIN [Suspect]
     Dosage: UNK
     Dates: start: 20050801, end: 20091001
  3. PROVENTIL [Concomitant]

REACTIONS (12)
  - HEART RATE INCREASED [None]
  - PAIN IN EXTREMITY [None]
  - CHEST PAIN [None]
  - INJURY [None]
  - DEEP VEIN THROMBOSIS [None]
  - HYPOVOLAEMIC SHOCK [None]
  - ANAEMIA [None]
  - PULMONARY EMBOLISM [None]
  - PELVIC PAIN [None]
  - MENOMETRORRHAGIA [None]
  - UTERINE HAEMORRHAGE [None]
  - MYOCARDIAL INFARCTION [None]
